FAERS Safety Report 13241984 (Version 3)
Quarter: 2017Q1

REPORT INFORMATION
  Report Type: Spontaneous
  Country: FR (occurrence: FR)
  Receive Date: 20170217
  Receipt Date: 20170316
  Transmission Date: 20170428
  Serious: Yes (Other)
  Sender: FDA-Public Use
  Company Number: FR-009507513-1702FRA007221

PATIENT
  Age: 25 Year
  Sex: Male

DRUGS (6)
  1. IFSOFAMIDE EG [Interacting]
     Active Substance: IFOSFAMIDE
     Indication: SARCOMA
     Dosage: STRENGTH: 40MG/ML, 4480 MG, 1 CYCLE
     Route: 042
     Dates: start: 20170127, end: 20170128
  2. DOXORUBICINE TEVA [Concomitant]
     Active Substance: DOXORUBICIN
     Dosage: 36 MG, QD
     Route: 042
     Dates: start: 20170220, end: 20170222
  3. EMEND [Suspect]
     Active Substance: APREPITANT
     Indication: PREMEDICATION
     Dosage: 125 MG, 1 CYCLE
     Route: 048
     Dates: start: 20170127, end: 20170128
  4. IFSOFAMIDE EG [Interacting]
     Active Substance: IFOSFAMIDE
     Dosage: 3000 MG, QD
     Route: 042
     Dates: start: 20170220, end: 20170222
  5. EMEND [Interacting]
     Active Substance: APREPITANT
     Dosage: 80 MG, UNK
     Route: 048
     Dates: start: 20170220
  6. DOXORUBICINE TEVA [Concomitant]
     Active Substance: DOXORUBICIN
     Indication: SARCOMA
     Dosage: 36 MG, 1 CYCLE
     Route: 042
     Dates: start: 20170112, end: 2017

REACTIONS (1)
  - Encephalopathy [Recovered/Resolved]

NARRATIVE: CASE EVENT DATE: 20170128
